FAERS Safety Report 7936387-2 (Version None)
Quarter: 2011Q4

REPORT INFORMATION
  Report Type: 
  Country: None (occurrence: None)
  Receive Date: 20111121
  Receipt Date: 20111107
  Transmission Date: 20120403
  Serious: Yes (Life-Threatening, Hospitalization, Other)
  Sender: FDA-Public Use
  Company Number: 2011P1008923

PATIENT
  Age: 73 Year
  Sex: Female

DRUGS (9)
  1. TRIAMCINOLONE ACETONIDE [Suspect]
     Indication: RASH
     Dosage: ;BID;TOP
     Route: 061
     Dates: start: 20110208, end: 20110210
  2. SPIRONOLACTONE [Concomitant]
  3. CARVEDILOL [Concomitant]
  4. PRAVASTATIN [Concomitant]
  5. HUMIRA [Concomitant]
  6. ASPIRIN [Concomitant]
  7. LISINOPRIL [Concomitant]
  8. FEMARA [Concomitant]
  9. PREDNISONE TAB [Concomitant]

REACTIONS (16)
  - INTRA-ABDOMINAL HAEMORRHAGE [None]
  - PRODUCTIVE COUGH [None]
  - DRUG INEFFECTIVE [None]
  - SKIN DISORDER [None]
  - CARDIOMEGALY [None]
  - ABDOMINAL PAIN [None]
  - SECRETION DISCHARGE [None]
  - LUNG INFILTRATION [None]
  - SKIN DISCOLOURATION [None]
  - ATELECTASIS [None]
  - OEDEMA PERIPHERAL [None]
  - PULMONARY THROMBOSIS [None]
  - THROMBOSIS [None]
  - BLOOD POTASSIUM INCREASED [None]
  - BRONCHITIS [None]
  - CONTUSION [None]
